FAERS Safety Report 22344204 (Version 1)
Quarter: 2023Q2

REPORT INFORMATION
  Report Type: Spontaneous
  Country: US (occurrence: US)
  Receive Date: 20230519
  Receipt Date: 20230519
  Transmission Date: 20230721
  Serious: Yes (Other)
  Sender: FDA-Public Use
  Company Number: US-009507513-2303USA009075

PATIENT
  Sex: Male
  Weight: 73.4 kg

DRUGS (1)
  1. KEYTRUDA [Suspect]
     Active Substance: PEMBROLIZUMAB
     Indication: Adenoid cystic carcinoma
     Dosage: 200 MILLIGRAM, Q3W
     Route: 042

REACTIONS (3)
  - Immune-mediated lung disease [Recovering/Resolving]
  - Blood test abnormal [Unknown]
  - Diarrhoea [Recovering/Resolving]
